FAERS Safety Report 6742445-0 (Version None)
Quarter: 2010Q2

REPORT INFORMATION
  Report Type: 
  Country: None (occurrence: None)
  Receive Date: 20100526
  Receipt Date: 20100517
  Transmission Date: 20101027
  Serious: Yes (Hospitalization, Other)
  Sender: FDA-Public Use
  Company Number: US-JNJCH-2010012025

PATIENT
  Sex: Female
  Weight: 90.7 kg

DRUGS (8)
  1. BENADRYL [Suspect]
     Indication: DRUG USE FOR UNKNOWN INDICATION
     Dosage: TEXT:50MG UNSPECIFIED
     Route: 048
  2. HYDROXYCHLOROQUINE SULFATE [Suspect]
     Indication: OSTEOARTHRITIS
     Route: 048
     Dates: start: 20100224, end: 20100319
  3. ANTIBIOTICS [Suspect]
     Indication: ACUTE FEBRILE NEUTROPHILIC DERMATOSIS
     Dosage: TEXT:10 MG DAILY
     Route: 048
     Dates: start: 20100324, end: 20100326
  4. AMPICILLIN SODIUM/SULBACTAM SODIUM [Suspect]
     Indication: ABSCESS
     Route: 042
     Dates: start: 20100418, end: 20100419
  5. LEVOTHYROXINE SODIUM [Concomitant]
     Indication: DRUG USE FOR UNKNOWN INDICATION
     Dosage: TEXT:UNSPECIFIED
     Route: 065
  6. PRILOSEC [Concomitant]
     Indication: DRUG USE FOR UNKNOWN INDICATION
     Dosage: TEXT:UNSPECIFIED
     Route: 065
  7. TRIAMTERENE AND HYDROCHLOROTHIAZIDE [Concomitant]
     Indication: DRUG USE FOR UNKNOWN INDICATION
     Dosage: TEXT:UNSPECIFIED
     Route: 065
  8. CYMBALTA [Concomitant]
     Indication: DRUG USE FOR UNKNOWN INDICATION
     Dosage: TEXT:UNSPECIFIED
     Route: 065

REACTIONS (6)
  - ABSCESS [None]
  - ACUTE FEBRILE NEUTROPHILIC DERMATOSIS [None]
  - HYPERSENSITIVITY [None]
  - INSOMNIA [None]
  - STAPHYLOCOCCAL INFECTION [None]
  - SWELLING [None]
